FAERS Safety Report 8159693-8 (Version None)
Quarter: 2012Q1

REPORT INFORMATION
  Report Type: 
  Country: None (occurrence: None)
  Receive Date: 20120223
  Receipt Date: 20101101
  Transmission Date: 20120608
  Serious: Yes (Hospitalization, Other)
  Sender: FDA-Public Use
  Company Number: US-BAYER-201018457NA

PATIENT
  Age: 35 Year
  Sex: Female
  Weight: 153 kg

DRUGS (12)
  1. LEVOTHYROXINE SODIUM [Concomitant]
  2. LEVOTHROID [Concomitant]
     Indication: HYPOTHYROIDISM
  3. BACTRIM [Concomitant]
     Indication: URINARY TRACT INFECTION
  4. YAZ [Suspect]
     Dates: start: 20051101
  5. IBUPROFEN [Concomitant]
  6. PREDNISONE [Concomitant]
  7. CIPROFLOXACIN [Concomitant]
  8. YASMIN [Suspect]
     Indication: MENSTRUATION IRREGULAR
     Dates: start: 20051001
  9. AMOXICILLIN [Concomitant]
     Dosage: 875 MG, BID
  10. WARFARIN SODIUM [Concomitant]
     Dosage: UNK
     Dates: start: 20091101, end: 20100501
  11. WARFARIN SODIUM [Concomitant]
  12. YASMIN [Suspect]
     Indication: CONTRACEPTION

REACTIONS (5)
  - CHOLELITHIASIS [None]
  - DEEP VEIN THROMBOSIS [None]
  - PULMONARY EMBOLISM [None]
  - GALLBLADDER DISORDER [None]
  - CHOLECYSTITIS [None]
